FAERS Safety Report 25955771 (Version 1)
Quarter: 2025Q4

REPORT INFORMATION
  Report Type: Spontaneous
  Country: CA (occurrence: CA)
  Receive Date: 20251024
  Receipt Date: 20251024
  Transmission Date: 20260118
  Serious: Yes (Hospitalization, Other)
  Sender: Onesource Specialty Pharma
  Company Number: CA-STRIDES ARCOLAB LIMITED-2025OS001036

PATIENT
  Age: 13 Year
  Sex: Male

DRUGS (3)
  1. MYCOPHENOLATE MOFETIL [Suspect]
     Active Substance: MYCOPHENOLATE MOFETIL
     Indication: Immunosuppressant drug therapy
     Dosage: UNK
     Route: 065
  2. TACROLIMUS [Suspect]
     Active Substance: TACROLIMUS
     Indication: Immunosuppressant drug therapy
     Dosage: UNK
     Route: 065
  3. USTEKINUMAB [Suspect]
     Active Substance: USTEKINUMAB
     Indication: Immunosuppressant drug therapy
     Dosage: UNK
     Route: 065

REACTIONS (3)
  - Cardiogenic shock [Unknown]
  - Renal failure [Unknown]
  - Drug ineffective [Unknown]
